FAERS Safety Report 4697890-4 (Version None)
Quarter: 2005Q2

REPORT INFORMATION
  Report Type: 
  Country: None (occurrence: None)
  Receive Date: 20050621
  Receipt Date: 20050607
  Transmission Date: 20051028
  Serious: Yes (Disabling)
  Sender: FDA-Public Use
  Company Number: GB-2005-009875

PATIENT
  Sex: Female

DRUGS (1)
  1. MAGNEVIST [Suspect]
     Indication: NUCLEAR MAGNETIC RESONANCE IMAGING
     Dosage: 15 ML, 1 DOSE
     Dates: start: 20040201, end: 20040201

REACTIONS (4)
  - EYE DISORDER [None]
  - MACULAR HOLE [None]
  - MACULAR SCAR [None]
  - VISUAL ACUITY REDUCED [None]
